FAERS Safety Report 16093155 (Version 1)
Quarter: 2019Q1

REPORT INFORMATION
  Report Type: Other
  Country: US (occurrence: US)
  Receive Date: 20190320
  Receipt Date: 20190320
  Transmission Date: 20190418
  Serious: No
  Sender: FDA-Public Use
  Company Number: US-APOTEX-2018AP020089

PATIENT

DRUGS (1)
  1. MODAFINIL TABLETS USP [Suspect]
     Active Substance: MODAFINIL
     Indication: PRODUCT USED FOR UNKNOWN INDICATION
     Dosage: UNK
     Route: 065

REACTIONS (7)
  - Product solubility abnormal [Unknown]
  - Product physical issue [Unknown]
  - Condition aggravated [Unknown]
  - Feeling abnormal [Unknown]
  - Rash [Unknown]
  - Malaise [Unknown]
  - Drug ineffective [Unknown]
